FAERS Safety Report 19860098 (Version 1)
Quarter: 2021Q3

REPORT INFORMATION
  Report Type: Spontaneous
  Country: CA (occurrence: CA)
  Receive Date: 20210920
  Receipt Date: 20210920
  Transmission Date: 20211014
  Serious: Yes (Disabling, Other)
  Sender: FDA-Public Use
  Company Number: CA-TEVA-2021-CA-1954782

PATIENT
  Age: 75 Year
  Sex: Male

DRUGS (5)
  1. NILOTINIB [Suspect]
     Active Substance: NILOTINIB
     Dosage: 600 MILLIGRAM DAILY;
     Route: 048
  2. IMATINIB. [Suspect]
     Active Substance: IMATINIB MESYLATE
     Dosage: 400 MILLIGRAM DAILY;
     Route: 048
  3. IMATINIB. [Suspect]
     Active Substance: IMATINIB MESYLATE
     Indication: CHRONIC MYELOID LEUKAEMIA
     Route: 065
  4. BOSUTINIB [Suspect]
     Active Substance: BOSUTINIB
     Indication: PRODUCT USED FOR UNKNOWN INDICATION
     Route: 065
  5. NILOTINIB [Suspect]
     Active Substance: NILOTINIB
     Indication: CHRONIC MYELOID LEUKAEMIA
     Route: 065

REACTIONS (6)
  - Cerebrovascular accident [Recovered/Resolved]
  - Peripheral swelling [Recovered/Resolved]
  - Visual impairment [Recovered/Resolved]
  - Drug ineffective [Recovered/Resolved]
  - Myalgia [Recovered/Resolved]
  - Drug intolerance [Recovered/Resolved]
